FAERS Safety Report 15074496 (Version 1)
Quarter: 2018Q2

REPORT INFORMATION
  Report Type: Spontaneous
  Country: US (occurrence: US)
  Receive Date: 20180627
  Receipt Date: 20180627
  Transmission Date: 20180711
  Serious: Yes (Other)
  Sender: FDA-Public Use
  Company Number: US-SAOL THERAPEUTICS-2018SAO00410

PATIENT
  Age: 58 Year
  Sex: Male

DRUGS (2)
  1. LIORESAL [Suspect]
     Active Substance: BACLOFEN
     Dosage: 929.4 ?G, \DAY
     Dates: start: 20180102
  2. LIORESAL [Suspect]
     Active Substance: BACLOFEN
     Dosage: 150 ?G, \DAY
     Route: 037

REACTIONS (3)
  - Device dislocation [Recovered/Resolved]
  - Therapy non-responder [Recovered/Resolved]
  - Device occlusion [Recovered/Resolved]

NARRATIVE: CASE EVENT DATE: 20180227
